FAERS Safety Report 10086491 (Version 1)
Quarter: 2014Q2

REPORT INFORMATION
  Report Type: Spontaneous
  Country: US (occurrence: US)
  Receive Date: 20140418
  Receipt Date: 20140418
  Transmission Date: 20141212
  Serious: Yes (Hospitalization)
  Sender: FDA-Public Use
  Company Number: US-PFIZER INC-2014104329

PATIENT
  Age: 51 Year
  Sex: Female
  Weight: 61.22 kg

DRUGS (11)
  1. PROTONIX [Suspect]
     Dosage: 40 MG, DAILY
     Route: 048
     Dates: start: 20110913
  2. PROMETHAZINE HCL [Concomitant]
     Indication: ABDOMINAL PAIN
     Dosage: 0.5 DF, AS NEEDED
     Route: 048
     Dates: start: 20120713
  3. PROMETHAZINE HCL [Concomitant]
     Indication: ABDOMINAL PAIN UPPER
  4. AZITHROMYCIN [Concomitant]
     Indication: LOWER RESPIRATORY TRACT INFECTION
     Dosage: 1 G, UNK
     Route: 048
     Dates: start: 20131220
  5. MORPHINE SULPHATE ER [Concomitant]
     Dosage: 30 MG, EVERY 12 HOURS, AS NEEDED
     Route: 048
  6. TYLOX [Concomitant]
     Dosage: OXYCODONE HCL [5MG]/PARACETAMOL [500MG] AS NEEDED
     Route: 048
  7. ZENPEP [Concomitant]
     Dosage: UNK, 2X/DAY (BEFORE MEALS AND AT BEDTIME)
     Route: 048
  8. B 12 [Concomitant]
     Dosage: UNK, MONTHLY
  9. LIDODERM [Concomitant]
     Dosage: 5 %, AS NEEDED
  10. VOLTAREN [Concomitant]
     Dosage: 1 %, AS NEEDED
  11. FLAXSEED OIL [Concomitant]
     Dosage: UNK, DAILY (^1 ORAL DAILY^)
     Route: 048

REACTIONS (2)
  - Pancreatitis acute [Unknown]
  - Pancreatitis acute [Unknown]
